FAERS Safety Report 24415125 (Version 1)
Quarter: 2024Q4

REPORT INFORMATION
  Report Type: Spontaneous
  Country: ES (occurrence: ES)
  Receive Date: 20241009
  Receipt Date: 20241009
  Transmission Date: 20250114
  Serious: Yes (Other)
  Sender: BLUEPRINT MEDICINES
  Company Number: ES-Blueprint Medicines Corporation-SP-ES-2024-002032

PATIENT
  Sex: Male

DRUGS (4)
  1. AVAPRITINIB [Suspect]
     Active Substance: AVAPRITINIB
     Indication: Product used for unknown indication
     Route: 065
  2. AVAPRITINIB [Suspect]
     Active Substance: AVAPRITINIB
     Route: 065
  3. AVAPRITINIB [Suspect]
     Active Substance: AVAPRITINIB
     Route: 065
  4. AVAPRITINIB [Suspect]
     Active Substance: AVAPRITINIB
     Route: 065

REACTIONS (3)
  - Thrombocytopenia [Unknown]
  - Oedema [Unknown]
  - Scrotal oedema [Unknown]
